FAERS Safety Report 9164915 (Version 1)
Quarter: 2013Q1

REPORT INFORMATION
  Report Type: Spontaneous
  Country: US (occurrence: None)
  Receive Date: 20130228
  Receipt Date: 20130228
  Transmission Date: 20140127
  Serious: Yes (Hospitalization, Other)
  Sender: FDA-Public Use
  Company Number: 2013HINLIT0020

PATIENT
  Age: 8 Year
  Sex: Male

DRUGS (5)
  1. LITHIUM (LITHIUM) UNKNOWN [Suspect]
     Route: 048
  2. GUANFACINE [Suspect]
     Dosage: FOR 1 MONTH.
     Route: 048
  3. LISDEXAMFETAMINE [Suspect]
     Dosage: 50 MG IN THE MORNING
  4. METHYLPREDNISOLONE [Concomitant]
  5. CLONIIDINE [Concomitant]

REACTIONS (5)
  - Chest pain [None]
  - Hypertension [None]
  - Tachycardia [None]
  - Feeling jittery [None]
  - Dyskinesia [None]
